FAERS Safety Report 8570314-2 (Version None)
Quarter: 2012Q3

REPORT INFORMATION
  Report Type: 
  Country: None (occurrence: None)
  Receive Date: 20120803
  Receipt Date: 20120731
  Transmission Date: 20120928
  Serious: Yes (Hospitalization, Other)
  Sender: FDA-Public Use
  Company Number: PHFR2012GB004037

PATIENT
  Age: 81 Year
  Sex: Male
  Weight: 80 kg

DRUGS (6)
  1. FINASTERIDE [Concomitant]
  2. ASPIRIN [Concomitant]
  3. ACETAMINOPHEN [Concomitant]
  4. CODEINE PHOSPHATE [Concomitant]
  5. DICLOFENAC SODIUM [Suspect]
     Indication: PAIN
  6. ATENOLOL [Suspect]
     Indication: HYPERTENSION

REACTIONS (3)
  - TROPONIN I INCREASED [None]
  - BRADYCARDIA [None]
  - RENAL FAILURE ACUTE [None]
